FAERS Safety Report 10744510 (Version 1)
Quarter: 2015Q1

REPORT INFORMATION
  Report Type: Spontaneous
  Country: US (occurrence: US)
  Receive Date: 20150128
  Receipt Date: 20150128
  Transmission Date: 20150721
  Serious: Yes (Hospitalization)
  Sender: FDA-Public Use
  Company Number: US-CIPLA LTD.-2015US00658

PATIENT

DRUGS (5)
  1. MINOXIDIL. [Suspect]
     Active Substance: MINOXIDIL
     Indication: HYPERTENSION
     Dosage: 0.15 MG/KG, QD
  2. MINOXIDIL. [Suspect]
     Active Substance: MINOXIDIL
     Dosage: 0.6 MG/KG, QD
  3. CAPTOPRIL. [Suspect]
     Active Substance: CAPTOPRIL
     Indication: HYPERTENSION
  4. AMLODIPINE [Suspect]
     Active Substance: AMLODIPINE BESYLATE
     Indication: HYPERTENSION
  5. CLONIDINE. [Suspect]
     Active Substance: CLONIDINE
     Indication: HYPERTENSION

REACTIONS (5)
  - Cardiac failure [Recovered/Resolved]
  - Creatinine renal clearance decreased [Recovered/Resolved]
  - Decreased appetite [Recovered/Resolved]
  - Oliguria [Recovered/Resolved]
  - Renal impairment [Recovered/Resolved]
